FAERS Safety Report 16347737 (Version 1)
Quarter: 2019Q2

REPORT INFORMATION
  Report Type: Spontaneous
  Country: US (occurrence: US)
  Receive Date: 20190417
  Receipt Date: 20190417
  Transmission Date: 20190711
  Serious: Yes (Other)
  Sender: FDA-Public Use
  Company Number: None

PATIENT
  Age: 82 Year
  Sex: Male
  Weight: 83.46 kg

DRUGS (4)
  1. COSOPT [Concomitant]
     Active Substance: DORZOLAMIDE HYDROCHLORIDE\TIMOLOL MALEATE
  2. FIRDAPSE [Suspect]
     Active Substance: AMIFAMPRIDINE
     Indication: MYASTHENIC SYNDROME
     Dosage: ?          QUANTITY:1.5 PILLS;OTHER FREQUENCY:5 X DAILY;?
     Route: 048
     Dates: end: 20181213
  3. MESTINON [Concomitant]
     Active Substance: PYRIDOSTIGMINE BROMIDE
  4. FIRDAPSE [Concomitant]
     Active Substance: AMIFAMPRIDINE

REACTIONS (9)
  - Headache [None]
  - Dyspnoea [None]
  - Seizure [None]
  - Muscle spasms [None]
  - Asthenia [None]
  - Blood pressure increased [None]
  - Back pain [None]
  - Pain in extremity [None]
  - Dizziness [None]

NARRATIVE: CASE EVENT DATE: 20181213
